FAERS Safety Report 8134316-2 (Version None)
Quarter: 2012Q1

REPORT INFORMATION
  Report Type: 
  Country: None (occurrence: None)
  Receive Date: 20120209
  Receipt Date: 20120131
  Transmission Date: 20120608
  Serious: Yes (Hospitalization, Other)
  Sender: FDA-Public Use
  Company Number: ADR-2009-6359

PATIENT
  Sex: Male

DRUGS (3)
  1. LIORESAL [Suspect]
     Indication: MUSCLE SPASTICITY
     Dosage: 300 - 370 MCG, DAILY
  2. LIORESAL [Suspect]
     Indication: BRAIN INJURY
     Dosage: 300 - 370 MCG, DAILY
  3. LIORESAL [Suspect]
     Indication: HEAD INJURY
     Dosage: 300 - 370 MCG, DAILY

REACTIONS (10)
  - DEVICE DAMAGE [None]
  - HEADACHE [None]
  - PRURITUS [None]
  - DRUG WITHDRAWAL SYNDROME [None]
  - CLONUS [None]
  - RASH MACULAR [None]
  - NAUSEA [None]
  - HYPERHIDROSIS [None]
  - PAIN [None]
  - HYPERTONIA [None]
